FAERS Safety Report 7395701-X (Version None)
Quarter: 2011Q2

REPORT INFORMATION
  Report Type: 
  Country: None (occurrence: None)
  Receive Date: 20110405
  Receipt Date: 20110105
  Transmission Date: 20111010
  Serious: No
  Sender: FDA-Public Use
  Company Number: US-BAYER-2011-027898

PATIENT
  Sex: Female
  Weight: 84 kg

DRUGS (7)
  1. ALEVE (CAPLET) [Suspect]
     Indication: ARTHRITIS
     Dosage: 1 DF, BID
     Route: 048
     Dates: start: 20101219
  2. BENAZEPRIL HYDROCHLORIDE [Concomitant]
  3. GLUCOSAMINE [Concomitant]
  4. MUCINEX [Concomitant]
  5. LUTEIN [Concomitant]
  6. SYNTHROID [Concomitant]
  7. CALCIUM +VIT D [Concomitant]

REACTIONS (1)
  - RASH GENERALISED [None]
